FAERS Safety Report 21371668 (Version 1)
Quarter: 2022Q3

REPORT INFORMATION
  Report Type: Spontaneous
  Country: DE (occurrence: DE)
  Receive Date: 20220923
  Receipt Date: 20220923
  Transmission Date: 20221026
  Serious: Yes (Other)
  Sender: FDA-Public Use
  Company Number: None

PATIENT
  Age: 67 Year
  Sex: Male
  Weight: 101.8 kg

DRUGS (28)
  1. ROSUVASTATIN [Suspect]
     Active Substance: ROSUVASTATIN
     Indication: Coronary artery stenosis
     Dosage: 10 MILLIGRAM DAILY; 10 MILLIGRAM, QD , THERAPY END DATE : NASK
     Route: 065
     Dates: end: 20210624
  2. ROSUVASTATIN [Suspect]
     Active Substance: ROSUVASTATIN
     Dosage: UNK
     Route: 065
  3. ROSUVASTATIN [Suspect]
     Active Substance: ROSUVASTATIN
     Dosage: 5 MILLIGRAM DAILY; 5 MILLIGRAM, QD,THERAPY END DATE : NASK
     Dates: start: 20210520
  4. PANTOPRAZOLE [Suspect]
     Active Substance: PANTOPRAZOLE
     Indication: Product used for unknown indication
     Dosage: 20 MILLIGRAM DAILY; 20 MILLIGRAM, QD, THERAPY START DATE  : NASK
     Dates: end: 20210624
  5. METHOTREXATE [Suspect]
     Active Substance: METHOTREXATE
     Indication: Product used for unknown indication
     Dosage: 15 MILLIGRAM, QW, UNIT DOSE :  15 MG, FREQUENCY TIME : 1 WEEKS, THERAPY START DATE  : NASK
     Route: 065
     Dates: end: 20210624
  6. PRIVIGEN [Suspect]
     Active Substance: HUMAN IMMUNOGLOBULIN G
     Indication: Chronic inflammatory demyelinating polyradiculoneuropathy
     Dosage: 10 GRAM, UNIT DOSE :  10 GRAM, UNIT DOSE : 55 MINUTES
     Route: 065
  7. PRIVIGEN [Suspect]
     Active Substance: HUMAN IMMUNOGLOBULIN G
     Dosage: UNK,   DURATION : 1 DAY
     Route: 065
     Dates: start: 20210517, end: 20210517
  8. PRIVIGEN [Suspect]
     Active Substance: HUMAN IMMUNOGLOBULIN G
     Dosage: 10 GRAM , UNIT DOSE :  10 GRAM,   DURATION : 90 MINUTES
     Route: 065
  9. PRIVIGEN [Suspect]
     Active Substance: HUMAN IMMUNOGLOBULIN G
     Dosage: 10 GRAM,UNIT DOSE :  10 GRAM,   DURATION : 95 MINUTES
     Route: 065
  10. PRIVIGEN [Suspect]
     Active Substance: HUMAN IMMUNOGLOBULIN G
     Dosage: 10 GRAM, UNIT DOSE :  10 GRAM,   DURATION : 1 HOUR
     Route: 065
  11. PRIVIGEN [Suspect]
     Active Substance: HUMAN IMMUNOGLOBULIN G
     Dosage: UNK, DURATION : 5 DAYS
     Dates: start: 20210719, end: 20210723
  12. PRIVIGEN [Suspect]
     Active Substance: HUMAN IMMUNOGLOBULIN G
     Dosage: UNK , THERAPY END DATE : ASKU
     Route: 065
     Dates: start: 2011
  13. PRIVIGEN [Suspect]
     Active Substance: HUMAN IMMUNOGLOBULIN G
     Dosage: 100 GRAM, QMT, THERAPY START DATE : ASKU , THERAPY END DATE : ASKU, UNIT DOSE :  100 GRAM,   FREQUEN
     Route: 065
  14. PRIVIGEN [Suspect]
     Active Substance: HUMAN IMMUNOGLOBULIN G
     Dosage: 10 GRAM, UNIT DOSE :  10 GRAM,   DURATION : 95 MINUTES
     Route: 065
  15. PRIVIGEN [Suspect]
     Active Substance: HUMAN IMMUNOGLOBULIN G
     Dosage: 10 GRAM, UNIT DOSE :  10 GRAM,   DURATION : 50 MINUTES
     Route: 065
  16. TORSEMIDE [Concomitant]
     Active Substance: TORSEMIDE
     Indication: Product used for unknown indication
     Dosage: 2.5 MILLIGRAM DAILY; 2.5 MILLIGRAM, QD
  17. FOLIC ACID [Concomitant]
     Active Substance: FOLIC ACID
     Indication: Product used for unknown indication
     Dosage: 5 MILLIGRAM, QW, UNIT DOSE :  5 MG, FREQUENCY TIME : 1 WEEKS
     Dates: end: 20210624
  18. ETORICOXIB [Concomitant]
     Active Substance: ETORICOXIB
     Indication: Product used for unknown indication
     Dosage: 90 MILLIGRAM, PRN, UNIT DOSE :  90 MG, FREQUENCY TIME : 1 AS REQUIRED
  19. ETORICOXIB [Concomitant]
     Active Substance: ETORICOXIB
     Dosage: 90 MILLIGRAM DAILY; 90 MILLIGRAM, QD
  20. CHOLECALCIFEROL [Concomitant]
     Active Substance: CHOLECALCIFEROL
     Indication: Product used for unknown indication
     Dosage: 2000 IU (INTERNATIONAL UNIT) DAILY; 2000 INTERNATIONAL UNIT, QD
  21. ASPIRIN [Concomitant]
     Active Substance: ASPIRIN
     Indication: Coronary artery stenosis
     Dosage: 100 MILLIGRAM DAILY; 100 MILLIGRAM, QD
     Dates: start: 20210520
  22. DULOXETINE [Concomitant]
     Active Substance: DULOXETINE
     Indication: Product used for unknown indication
     Dosage: 60 MILLIGRAM DAILY; 60 MILLIGRAM, QD
  23. TILIDINE [Concomitant]
     Active Substance: TILIDINE
     Indication: Product used for unknown indication
     Dosage: UNK UNK, PRN, FREQUENCY TIME : 1 AS REQUIRED
  24. TILIDINE [Concomitant]
     Active Substance: TILIDINE
     Dosage: 2 DOSAGE FORM, PRN, FREQUENCY TIME : 1 AS REQUIRED , UNIT DOSE : 2 DF
  25. VALSARTAN [Concomitant]
     Active Substance: VALSARTAN
     Indication: Product used for unknown indication
     Dosage: 320 MILLIGRAM DAILY; 160 MILLIGRAM, BID
  26. VALSARTAN [Concomitant]
     Active Substance: VALSARTAN
     Dosage: 160 MILLIGRAM DAILY; 160 MILLIGRAM, QD
  27. VALSARTAN [Concomitant]
     Active Substance: VALSARTAN
     Dosage: 160 MILLIGRAM DAILY; 160 MILLIGRAM, QD
  28. TOCILIZUMAB [Concomitant]
     Active Substance: TOCILIZUMAB
     Indication: Product used for unknown indication
     Dosage: 162 MG, QW , UNIT DOSE : 162 MG, FREQUENCY TIME : 1 WEEKS

REACTIONS (4)
  - Liver function test abnormal [Recovered/Resolved]
  - Hepatitis E antibody positive [Unknown]
  - Hepatitis E virus test positive [Unknown]
  - Suspected transmission of an infectious agent via product [Unknown]

NARRATIVE: CASE EVENT DATE: 20210621
